FAERS Safety Report 10141497 (Version 1)
Quarter: 2014Q2

REPORT INFORMATION
  Report Type: Spontaneous
  Country: DE (occurrence: DE)
  Receive Date: 20140429
  Receipt Date: 20140429
  Transmission Date: 20141212
  Serious: Yes (Other)
  Sender: FDA-Public Use
  Company Number: DE-MYLANLABS-2014S1008877

PATIENT
  Sex: Male

DRUGS (2)
  1. TERBINAFINE [Suspect]
     Indication: ONYCHOMYCOSIS
     Dates: start: 20140409
  2. TERBINAFINE [Suspect]
     Indication: ONYCHOMYCOSIS
     Dates: start: 201401

REACTIONS (5)
  - Malaise [Unknown]
  - Restlessness [Unknown]
  - Flushing [Unknown]
  - Blood pressure increased [Unknown]
  - Hypertension [Unknown]
